FAERS Safety Report 10286294 (Version 1)
Quarter: 2014Q3

REPORT INFORMATION
  Report Type: Report from Study
  Country: SI (occurrence: SI)
  Receive Date: 20140709
  Receipt Date: 20140709
  Transmission Date: 20150326
  Serious: Yes (Other)
  Sender: FDA-Public Use
  Company Number: SI-US-EMD SERONO, INC.-7304977

PATIENT
  Sex: Female

DRUGS (3)
  1. AMANTADIN [Concomitant]
     Indication: PRODUCT USED FOR UNKNOWN INDICATION
  2. LEKADOL [Concomitant]
     Active Substance: ACETAMINOPHEN
     Indication: PRODUCT USED FOR UNKNOWN INDICATION
  3. REBIF [Suspect]
     Active Substance: INTERFERON BETA-1A
     Indication: PRODUCT USED FOR UNKNOWN INDICATION
     Route: 058
     Dates: start: 200212

REACTIONS (7)
  - Ischaemic cardiomyopathy [Unknown]
  - Nervousness [Unknown]
  - Hypertension [Unknown]
  - Cardiac disorder [Recovered/Resolved with Sequelae]
  - Cardiac failure [Unknown]
  - Fatigue [Unknown]
  - Benign breast neoplasm [Recovered/Resolved]
